FAERS Safety Report 5738138-9 (Version None)
Quarter: 2008Q2

REPORT INFORMATION
  Report Type: 
  Country: None (occurrence: None)
  Receive Date: 20080509
  Receipt Date: 20071214
  Transmission Date: 20081010
  Serious: Yes (Other)
  Sender: FDA-Public Use
  Company Number: PHEH2007US15746

PATIENT
  Sex: Female
  Weight: 56.8 kg

DRUGS (7)
  1. TEGRETOL [Suspect]
     Indication: CONVULSION
     Dates: start: 19970101
  2. ALL OTHER THERAPEUTIC PRODUCTS(NO INGREDIENTS/SUBSTANCES) [Suspect]
     Indication: CONVULSION
     Dates: start: 19970101
  3. PHENYTOIN [Suspect]
     Indication: CONVULSION
     Dosage: 200 MG, QD, ORAL; ORAL; 300 MG, QD, ORAL; 400 MG, QD, ORAL; 100 MG QAM, 200MG QHS, ORAL
     Route: 048
     Dates: start: 19940101, end: 19970101
  4. PHENYTOIN [Suspect]
     Indication: CONVULSION
     Dosage: 200 MG, QD, ORAL; ORAL; 300 MG, QD, ORAL; 400 MG, QD, ORAL; 100 MG QAM, 200MG QHS, ORAL
     Route: 048
     Dates: start: 20071125, end: 20071127
  5. PHENYTOIN [Suspect]
     Indication: CONVULSION
     Dosage: 200 MG, QD, ORAL; ORAL; 300 MG, QD, ORAL; 400 MG, QD, ORAL; 100 MG QAM, 200MG QHS, ORAL
     Route: 048
     Dates: start: 20071127, end: 20071128
  6. PHENYTOIN [Suspect]
     Indication: CONVULSION
     Dosage: 200 MG, QD, ORAL; ORAL; 300 MG, QD, ORAL; 400 MG, QD, ORAL; 100 MG QAM, 200MG QHS, ORAL
     Route: 048
     Dates: start: 20071128
  7. PRIMIDONE [Concomitant]

REACTIONS (8)
  - AMNESIA [None]
  - AURA [None]
  - COGNITIVE DISORDER [None]
  - FATIGUE [None]
  - HALLUCINATION [None]
  - HYPOTHYROIDISM [None]
  - OSTEOPENIA [None]
  - RASH [None]
